FAERS Safety Report 17845630 (Version 4)
Quarter: 2020Q3

REPORT INFORMATION
  Report Type: Spontaneous
  Country: US (occurrence: US)
  Receive Date: 20200601
  Receipt Date: 20200706
  Transmission Date: 20201103
  Serious: Yes (Other)
  Sender: FDA-Public Use
  Company Number: US-PFIZER INC-2020212937

PATIENT
  Age: 37 Year
  Sex: Female

DRUGS (1)
  1. SERTRALINE HCL [Suspect]
     Active Substance: SERTRALINE HYDROCHLORIDE
     Indication: OBSESSIVE-COMPULSIVE DISORDER
     Dosage: 100 MG, 2X/DAY (ALSO REPORTED AS 200 MG, 1X/DAY)
     Route: 048
     Dates: start: 20200528, end: 20200604

REACTIONS (22)
  - Thirst [Unknown]
  - Bipolar disorder [Unknown]
  - Anger [Recovered/Resolved]
  - Affect lability [Unknown]
  - Abnormal dreams [Unknown]
  - Feeling of despair [Recovered/Resolved]
  - Perinatal depression [Unknown]
  - Skin odour abnormal [Unknown]
  - Dry mouth [Unknown]
  - Screaming [Unknown]
  - Tension [Unknown]
  - Impatience [Recovered/Resolved]
  - Mood swings [Unknown]
  - Negative thoughts [Recovered/Resolved]
  - Aggression [Unknown]
  - Agitation [Unknown]
  - Anxiety [Unknown]
  - Depression [Unknown]
  - Mood altered [Recovered/Resolved]
  - Suicidal ideation [Unknown]
  - Psychiatric symptom [Unknown]
  - Drug ineffective [Unknown]

NARRATIVE: CASE EVENT DATE: 2020
